FAERS Safety Report 12556819 (Version 2)
Quarter: 2016Q3

REPORT INFORMATION
  Report Type: Spontaneous
  Country: US (occurrence: US)
  Receive Date: 20160714
  Receipt Date: 20160725
  Transmission Date: 20161109
  Serious: No
  Sender: FDA-Public Use
  Company Number: US-PFIZER INC-2016305719

PATIENT
  Age: 68 Year
  Sex: Female
  Weight: 74 kg

DRUGS (7)
  1. METOPROLOL SUCCINATE ER [Concomitant]
     Active Substance: METOPROLOL SUCCINATE
     Dosage: 50 MG, 2X/DAY (1 TABLET TWICE A DAY)
  2. NITRO BID [Concomitant]
     Dosage: 0.2 %, AS NEEDED (AS DIRECTED TWICE A DAY, NOTES: PRN)
     Route: 054
  3. METAMUCIL CLEAR + NATURAL [Concomitant]
     Dosage: UNK UNK, AS NEEDED
  4. WARFARIN SODIUM. [Concomitant]
     Active Substance: WARFARIN SODIUM
     Dosage: 6 MG, DAILY (1 TABLET AS DIRECTED DAILY)
  5. LEVOTHYROXINE SODIUM. [Concomitant]
     Active Substance: LEVOTHYROXINE SODIUM
     Dosage: 50 UG, 1X/DAY
  6. TIKOSYN [Suspect]
     Active Substance: DOFETILIDE
     Indication: ATRIAL FIBRILLATION
     Dosage: 500 UG, 2X/DAY
  7. VITAMIN D3 [Concomitant]
     Active Substance: CHOLECALCIFEROL
     Dosage: 2000 IU, DAILY (DALIY WITH FOOD)

REACTIONS (2)
  - Blood pressure ambulatory increased [Unknown]
  - Weight decreased [Unknown]
